FAERS Safety Report 26120076 (Version 1)
Quarter: 2025Q4

REPORT INFORMATION
  Report Type: Spontaneous
  Country: BH (occurrence: BH)
  Receive Date: 20251204
  Receipt Date: 20251204
  Transmission Date: 20260117
  Serious: Yes (Other)
  Sender: NOVARTIS
  Company Number: BH-002147023-NVSC2025BH184662

PATIENT
  Age: 87 Year
  Sex: Male

DRUGS (2)
  1. SCEMBLIX [Suspect]
     Active Substance: ASCIMINIB HYDROCHLORIDE
     Indication: Chronic myeloid leukaemia
     Dosage: 40 MG, QD (TWICE A WEEK)
     Route: 065
     Dates: start: 202502
  2. APIXABAN [Interacting]
     Active Substance: APIXABAN
     Indication: Product used for unknown indication
     Dosage: UNK
     Route: 065

REACTIONS (4)
  - Haemarthrosis [Recovering/Resolving]
  - Therapy non-responder [Recovering/Resolving]
  - Ecchymosis [Recovering/Resolving]
  - Off label use [Recovering/Resolving]
